FAERS Safety Report 18701655 (Version 1)
Quarter: 2021Q1

REPORT INFORMATION
  Report Type: Spontaneous
  Country: US (occurrence: US)
  Receive Date: 20210105
  Receipt Date: 20210105
  Transmission Date: 20210419
  Serious: No
  Sender: FDA-Public Use
  Company Number: None

PATIENT
  Age: 67 Year
  Sex: Female
  Weight: 134.1 kg

DRUGS (18)
  1. TRADJENTA [Concomitant]
     Active Substance: LINAGLIPTIN
  2. TRIAMCINOLONE [Concomitant]
     Active Substance: TRIAMCINOLONE
  3. COREG [Concomitant]
     Active Substance: CARVEDILOL
  4. NAPROXEN. [Concomitant]
     Active Substance: NAPROXEN
  5. OMEPRAZOLE. [Concomitant]
     Active Substance: OMEPRAZOLE
  6. METFORMIN [Concomitant]
     Active Substance: METFORMIN HYDROCHLORIDE
  7. RAMIPRIL. [Concomitant]
     Active Substance: RAMIPRIL
  8. IBRANCE [Suspect]
     Active Substance: PALBOCICLIB
     Indication: BREAST CANCER
     Route: 048
     Dates: start: 20200730
  9. VITAMIN B12 [Concomitant]
     Active Substance: CYANOCOBALAMIN
  10. GLIMEPIRIDE. [Concomitant]
     Active Substance: GLIMEPIRIDE
  11. LETROZOLE. [Concomitant]
     Active Substance: LETROZOLE
  12. NYSTATIN. [Concomitant]
     Active Substance: NYSTATIN
  13. SIMVASTATIN. [Concomitant]
     Active Substance: SIMVASTATIN
  14. VITAMIN C [Concomitant]
     Active Substance: ASCORBIC ACID
  15. ASPIRIN. [Concomitant]
     Active Substance: ASPIRIN
  16. GABAPENTIN. [Concomitant]
     Active Substance: GABAPENTIN
  17. VITAMIN D [Concomitant]
     Active Substance: VITAMIN D NOS
  18. XGEVA [Concomitant]
     Active Substance: DENOSUMAB

REACTIONS (1)
  - Dry skin [None]

NARRATIVE: CASE EVENT DATE: 20210105
